FAERS Safety Report 7970339-1 (Version None)
Quarter: 2011Q4

REPORT INFORMATION
  Report Type: 
  Country: None (occurrence: None)
  Receive Date: 20111212
  Receipt Date: 20111205
  Transmission Date: 20120403
  Serious: Yes (Hospitalization)
  Sender: FDA-Public Use
  Company Number: TW-SANOFI-AVENTIS-2011SA065523

PATIENT

DRUGS (1)
  1. DRONEDARONE HCL [Suspect]
     Route: 048
     Dates: start: 20110915, end: 20111003

REACTIONS (4)
  - ACUTE POLYNEUROPATHY [None]
  - HYPOAESTHESIA [None]
  - SENSORY LOSS [None]
  - GAIT DISTURBANCE [None]
